FAERS Safety Report 10289835 (Version 2)
Quarter: 2014Q3

REPORT INFORMATION
  Report Type: Spontaneous
  Country: US (occurrence: US)
  Receive Date: 20140710
  Receipt Date: 20140815
  Transmission Date: 20150326
  Serious: Yes (Hospitalization)
  Sender: FDA-Public Use
  Company Number: US-BAYER-2014-101863

PATIENT
  Age: 21 Year
  Sex: Female
  Weight: 60.32 kg

DRUGS (2)
  1. XANAX [Concomitant]
     Active Substance: ALPRAZOLAM
  2. MIRENA [Suspect]
     Active Substance: LEVONORGESTREL
     Indication: CONTRACEPTION
     Dosage: 20 MCG/24HR, CONT
     Route: 015
     Dates: start: 20110812, end: 20120713

REACTIONS (8)
  - Device dislocation [None]
  - Emotional distress [None]
  - Device issue [None]
  - Medical device pain [None]
  - Medical device discomfort [None]
  - Uterine perforation [None]
  - Pelvic pain [None]
  - Injury [None]

NARRATIVE: CASE EVENT DATE: 20120429
